FAERS Safety Report 8836487 (Version 2)
Quarter: 2013Q2

REPORT INFORMATION
  Report Type: Spontaneous
  Country: CA (occurrence: CA)
  Receive Date: 20121011
  Receipt Date: 20130610
  Transmission Date: 20140414
  Serious: Yes (Hospitalization, Other)
  Sender: FDA-Public Use
  Company Number: CA-ELI_LILLY_AND_COMPANY-CA201210001557

PATIENT
  Age: 60 Year
  Sex: Male

DRUGS (3)
  1. CIALIS [Suspect]
     Dosage: 1 DF, UNKNOWN
  2. ENBREL [Interacting]
     Indication: RHEUMATOID ARTHRITIS
     Dosage: 50.0 MG, WEEKLY (1/W)
     Route: 058
  3. COUMADIN [Concomitant]

REACTIONS (3)
  - Arthralgia [Recovered/Resolved]
  - Malaise [Recovered/Resolved]
  - Drug interaction [Recovered/Resolved]
